APPROVED DRUG PRODUCT: FENOFIBRATE (MICRONIZED)
Active Ingredient: FENOFIBRATE
Strength: 200MG
Dosage Form/Route: CAPSULE;ORAL
Application: A207564 | Product #003
Applicant: NOVAST LABORATORIES LTD
Approved: Apr 19, 2019 | RLD: No | RS: No | Type: DISCN